FAERS Safety Report 15551277 (Version 1)
Quarter: 2020Q3

REPORT INFORMATION
  Report Type: Report from Study
  Country: ES (occurrence: ES)
  Receive Date: 20181025
  Receipt Date: 20181025
  Transmission Date: 20201105
  Serious: Yes (Hospitalization)
  Sender: FDA-Public Use
  Company Number: ES-ASTRAZENECA-2018SF20251

PATIENT
  Age: 20778 Day
  Sex: Male

DRUGS (2)
  1. DURVALUMAB. [Suspect]
     Active Substance: DURVALUMAB
     Indication: GASTROENTEROPANCREATIC NEUROENDOCRINE TUMOUR DISEASE
     Route: 042
     Dates: start: 20180817, end: 20180817
  2. TREMELIMUMAB. [Suspect]
     Active Substance: TREMELIMUMAB
     Indication: GASTROENTEROPANCREATIC NEUROENDOCRINE TUMOUR DISEASE
     Route: 042
     Dates: start: 20180817, end: 20180817

REACTIONS (1)
  - Encephalitis autoimmune [Recovered/Resolved with Sequelae]

NARRATIVE: CASE EVENT DATE: 20180913
